FAERS Safety Report 7442943-0 (Version None)
Quarter: 2011Q2

REPORT INFORMATION
  Report Type: 
  Country: None (occurrence: None)
  Receive Date: 20110425
  Receipt Date: 20110425
  Transmission Date: 20111010
  Serious: Yes (Death)
  Sender: FDA-Public Use
  Company Number: None

PATIENT
  Age: 61 Year
  Sex: Female

DRUGS (1)
  1. REVLIMID [Suspect]
     Indication: MYELODYSPLASTIC SYNDROME
     Dosage: REVLIMID 5 MG EVERY OTHER DAY ORALLY
     Route: 048
     Dates: start: 20100701, end: 20100901

REACTIONS (7)
  - PLATELET COUNT DECREASED [None]
  - HAEMOGLOBIN DECREASED [None]
  - MYELODYSPLASTIC SYNDROME [None]
  - MYALGIA [None]
  - DISEASE PROGRESSION [None]
  - FATIGUE [None]
  - DIARRHOEA [None]
